FAERS Safety Report 22093561 (Version 2)
Quarter: 2023Q1

REPORT INFORMATION
  Report Type: Spontaneous
  Country: CZ (occurrence: CZ)
  Receive Date: 20230314
  Receipt Date: 20230317
  Transmission Date: 20230417
  Serious: Yes (Other)
  Sender: FDA-Public Use
  Company Number: CZ-BAXTER-2023BAX014990

PATIENT
  Age: 43 Year
  Sex: Female

DRUGS (1)
  1. ANHYDROUS DEXTROSE\CALCIUM CHLORIDE\MAGNESIUM CHLORIDE\SODIUM BICARBON [Suspect]
     Active Substance: ANHYDROUS DEXTROSE\CALCIUM CHLORIDE\MAGNESIUM CHLORIDE\SODIUM BICARBONATE\SODIUM CHLORIDE\SODIUM LAC
     Indication: Peritoneal dialysis
     Dosage: 1500 ML
     Route: 033

REACTIONS (4)
  - Pleuroperitoneal communication [Unknown]
  - Diaphragmatic disorder [Unknown]
  - Peritoneal dialysate leakage [Unknown]
  - Respiratory disorder [Recovered/Resolved]
